FAERS Safety Report 26116922 (Version 1)
Quarter: 2025Q4

REPORT INFORMATION
  Report Type: Spontaneous
  Country: EU (occurrence: EU)
  Receive Date: 20251203
  Receipt Date: 20251203
  Transmission Date: 20260117
  Serious: Yes (Other)
  Sender: IMMUNOCORE
  Company Number: EU-Medison-001775

PATIENT

DRUGS (1)
  1. TEBENTAFUSP [Suspect]
     Active Substance: TEBENTAFUSP
     Indication: Ocular melanoma
     Dosage: 1/WEEK

REACTIONS (1)
  - Malignant neoplasm progression [Unknown]
